FAERS Safety Report 6969268-1 (Version None)
Quarter: 2010Q3

REPORT INFORMATION
  Report Type: 
  Country: None (occurrence: None)
  Receive Date: 20100907
  Receipt Date: 20100825
  Transmission Date: 20110219
  Serious: Yes (Other)
  Sender: FDA-Public Use
  Company Number: NL-ELI_LILLY_AND_COMPANY-NL201008008483

PATIENT

DRUGS (6)
  1. PROZAC [Suspect]
     Dosage: UNK UNK, DAILY (1/D)
  2. OMEPRAZOLE [Concomitant]
  3. MICONAZOLE [Concomitant]
  4. HYDROCORTISON [Concomitant]
  5. CLOTRIMAZOL [Concomitant]
  6. FOLIC ACID [Concomitant]

REACTIONS (2)
  - DRUG EXPOSURE DURING PREGNANCY [None]
  - PYLORIC STENOSIS [None]
